FAERS Safety Report 18394043 (Version 6)
Quarter: 2021Q1

REPORT INFORMATION
  Report Type: Spontaneous
  Country: JP (occurrence: JP)
  Receive Date: 20201017
  Receipt Date: 20210330
  Transmission Date: 20210419
  Serious: Yes (Death, Life-Threatening, Disabling, Other)
  Sender: FDA-Public Use
  Company Number: JP-AMGEN-JPNSP2020162671

PATIENT
  Age: 35 Year
  Sex: Male
  Weight: 57 kg

DRUGS (8)
  1. URSODEOXYCHOLIC ACID [Concomitant]
     Active Substance: URSODIOL
     Dosage: 600 MILLIGRAM
     Dates: start: 20200709, end: 20201227
  2. BLINCYTO [Suspect]
     Active Substance: BLINATUMOMAB
     Indication: B PRECURSOR TYPE ACUTE LEUKAEMIA
     Dosage: 9 MICROGRAM
     Route: 042
     Dates: start: 20200711, end: 20200717
  3. BLINCYTO [Suspect]
     Active Substance: BLINATUMOMAB
     Dosage: 28 MICROGRAM
     Route: 042
     Dates: start: 20200730, end: 20200818
  4. FEBURIC [Concomitant]
     Active Substance: FEBUXOSTAT
     Dosage: 60 MILLIGRAM
  5. TAKECAB [Concomitant]
     Active Substance: VONOPRAZAN FUMARATE
     Dosage: 10 MILLIGRAM
     Dates: start: 20200705, end: 20201227
  6. BLINCYTO [Suspect]
     Active Substance: BLINATUMOMAB
     Dosage: 9 MICROGRAM
     Route: 042
     Dates: start: 20200723, end: 20200730
  7. BLINCYTO [Suspect]
     Active Substance: BLINATUMOMAB
     Dosage: 28 MICROGRAM
     Route: 042
     Dates: start: 20200902, end: 20200926
  8. BLINCYTO [Suspect]
     Active Substance: BLINATUMOMAB
     Dosage: 28 MICROGRAM
     Route: 042
     Dates: start: 20200718, end: 20200720

REACTIONS (5)
  - Tumour lysis syndrome [Recovered/Resolved]
  - Leukaemic infiltration [Not Recovered/Not Resolved]
  - Haemophagocytic lymphohistiocytosis [Fatal]
  - Venoocclusive liver disease [Not Recovered/Not Resolved]
  - Acute lymphocytic leukaemia recurrent [Recovered/Resolved]

NARRATIVE: CASE EVENT DATE: 20200712
